FAERS Safety Report 15843349 (Version 2)
Quarter: 2019Q1

REPORT INFORMATION
  Report Type: Spontaneous
  Country: US (occurrence: US)
  Receive Date: 20190118
  Receipt Date: 20190215
  Transmission Date: 20190417
  Serious: Yes (Disabling, Other)
  Sender: FDA-Public Use
  Company Number: US-REGENERON PHARMACEUTICALS, INC.-2019-11431

PATIENT

DRUGS (3)
  1. EYLEA [Suspect]
     Active Substance: AFLIBERCEPT
     Dosage: 2 UNITS, APPROXIMATELY 6 WEEKS, LAST DOSE , BILATERAL
     Route: 031
     Dates: start: 20181121, end: 20181121
  2. EYLEA [Suspect]
     Active Substance: AFLIBERCEPT
     Indication: NEOVASCULAR AGE-RELATED MACULAR DEGENERATION
     Dosage: 2 UNITS, APPROXIMATELY 6 WEEKS, FIRST DOSE TO OD
     Route: 031
     Dates: start: 20151210
  3. EYLEA [Suspect]
     Active Substance: AFLIBERCEPT
     Dosage: 2 UNITS, APPROXIMATELY 6 WEEKS, FIRST DOSE TO OS
     Route: 031
     Dates: start: 20161125, end: 20161125

REACTIONS (5)
  - Wrong technique in product usage process [Unknown]
  - Non-infectious endophthalmitis [Recovered/Resolved]
  - Vitritis [Unknown]
  - Blindness unilateral [Not Recovered/Not Resolved]
  - Blindness transient [Recovered/Resolved]

NARRATIVE: CASE EVENT DATE: 20181126
